FAERS Safety Report 17982883 (Version 3)
Quarter: 2020Q4

REPORT INFORMATION
  Report Type: Spontaneous
  Country: CZ (occurrence: CZ)
  Receive Date: 20200706
  Receipt Date: 20201026
  Transmission Date: 20210113
  Serious: Yes (Other)
  Sender: FDA-Public Use
  Company Number: CZ-MYLANLABS-2020M1060750

PATIENT
  Age: 14 Year
  Sex: Female

DRUGS (27)
  1. SERTRALINE [Concomitant]
     Active Substance: SERTRALINE HYDROCHLORIDE
     Indication: MIXED ANXIETY AND DEPRESSIVE DISORDER
     Dosage: 75 MILLIGRAM
     Route: 065
     Dates: start: 201710
  2. SERTRALINE [Concomitant]
     Active Substance: SERTRALINE HYDROCHLORIDE
     Dosage: 50 MILLIGRAM
     Route: 065
     Dates: start: 201706
  3. ARIPIPRAZOLE. [Suspect]
     Active Substance: ARIPIPRAZOLE
     Indication: HYPOMANIA
  4. OLANZAPINE. [Suspect]
     Active Substance: OLANZAPINE
     Indication: BIPOLAR DISORDER
  5. LITHIUM. [Concomitant]
     Active Substance: LITHIUM
     Indication: DEPRESSION
     Dosage: 1050 MILLIGRAM
     Route: 065
  6. LITHIUM. [Concomitant]
     Active Substance: LITHIUM
     Indication: BIPOLAR DISORDER
     Dosage: 1200 MILLIGRAM
     Route: 065
  7. QUETIAPINE. [Suspect]
     Active Substance: QUETIAPINE
     Indication: DEPRESSION
  8. RISPERIDONE. [Suspect]
     Active Substance: RISPERIDONE
     Indication: INSOMNIA
  9. ARIPIPRAZOLE. [Suspect]
     Active Substance: ARIPIPRAZOLE
     Indication: BIPOLAR DISORDER
     Dosage: 10 MILLIGRAM
     Route: 065
  10. LITHIUM. [Concomitant]
     Active Substance: LITHIUM
     Dosage: LITHIUM WAS INCREASED TO 1050 MG
     Dates: start: 2018
  11. QUETIAPINE. [Concomitant]
     Active Substance: QUETIAPINE
     Dosage: 37.5 MILLIGRAM
     Route: 065
     Dates: start: 201805
  12. ARIPIPRAZOLE. [Suspect]
     Active Substance: ARIPIPRAZOLE
     Indication: PSYCHOMOTOR HYPERACTIVITY
  13. RISPERIDONE. [Suspect]
     Active Substance: RISPERIDONE
     Indication: PSYCHOMOTOR HYPERACTIVITY
  14. QUETIAPINE. [Concomitant]
     Active Substance: QUETIAPINE
     Indication: BIPOLAR DISORDER
     Dosage: 25 MILLIGRAM (DOSE REDUCED)
     Route: 065
  15. OLANZAPINE. [Suspect]
     Active Substance: OLANZAPINE
     Indication: DEPRESSION
  16. RISPERIDONE. [Suspect]
     Active Substance: RISPERIDONE
     Indication: HYPOMANIA
     Dosage: 0.5 MG
     Route: 065
     Dates: start: 201708, end: 201710
  17. VENLAFAXINE [Concomitant]
     Active Substance: VENLAFAXINE HYDROCHLORIDE
     Indication: DEPRESSION
     Dosage: 75 MILLIGRAM
     Route: 065
     Dates: start: 201801
  18. LITHIUM. [Concomitant]
     Active Substance: LITHIUM
     Indication: BIPOLAR DISORDER
     Dosage: 1200 MILLIGRAM, QD (1200 MG PER DAY)
     Route: 065
  19. ARIPIPRAZOLE. [Suspect]
     Active Substance: ARIPIPRAZOLE
     Indication: INSOMNIA
     Dosage: 5 MILLIGRAM
     Route: 065
     Dates: start: 201710
  20. QUETIAPINE. [Suspect]
     Active Substance: QUETIAPINE
     Indication: HYPOMANIA
     Dosage: 37.5 MILLIGRAM
     Route: 065
     Dates: start: 201805
  21. VENLAFAXINE [Concomitant]
     Active Substance: VENLAFAXINE HYDROCHLORIDE
     Dosage: 50 MILLIGRAM
     Route: 065
     Dates: start: 201805
  22. SERTRALINE [Concomitant]
     Active Substance: SERTRALINE HYDROCHLORIDE
     Indication: BIPOLAR DISORDER
     Dosage: 75 MILLIGRAM, QD (INCREASED DOSE TO 75 MG PER DAY FROM 50 MG PER DAY)
     Route: 065
     Dates: start: 201710
  23. OLANZAPINE. [Suspect]
     Active Substance: OLANZAPINE
     Indication: BIPOLAR DISORDER
     Dosage: 5 MILLIGRAM
     Route: 065
     Dates: start: 2018, end: 201812
  24. VENLAFAXINE [Concomitant]
     Active Substance: VENLAFAXINE HYDROCHLORIDE
     Indication: BIPOLAR DISORDER
     Dosage: 50 MILLIGRAM, QD (DOSE REDUCED)
     Route: 065
     Dates: start: 201805
  25. VENLAFAXINE [Concomitant]
     Active Substance: VENLAFAXINE HYDROCHLORIDE
     Indication: HYPOMANIA
     Dosage: 75 MILLIGRAM, QD
     Route: 065
     Dates: start: 201801
  26. LITHIUM. [Concomitant]
     Active Substance: LITHIUM
     Dosage: UNK
     Dates: start: 2018, end: 2018
  27. LITHIUM. [Concomitant]
     Active Substance: LITHIUM
     Dosage: TITRATION
     Dates: start: 2018

REACTIONS (21)
  - Helplessness [Recovered/Resolved]
  - Weight increased [Unknown]
  - Depressive symptom [Unknown]
  - Disturbance in attention [Recovered/Resolved]
  - Anhedonia [Recovered/Resolved]
  - Anxiety [Unknown]
  - Drug intolerance [Unknown]
  - Hyperphagia [Unknown]
  - Drug ineffective [Unknown]
  - Depressed mood [Recovered/Resolved]
  - Abulia [Recovered/Resolved]
  - Headache [Unknown]
  - Psychiatric symptom [Recovered/Resolved]
  - Hyperprolactinaemia [Unknown]
  - Increased appetite [Unknown]
  - Social avoidant behaviour [Recovered/Resolved]
  - Laziness [Recovered/Resolved]
  - Hypotension [Unknown]
  - Fatigue [Unknown]
  - Menstrual disorder [Unknown]
  - Therapeutic product effect incomplete [Unknown]

NARRATIVE: CASE EVENT DATE: 201712
